FAERS Safety Report 9228238 (Version 1)
Quarter: 2013Q2

REPORT INFORMATION
  Report Type: Spontaneous
  Country: US (occurrence: None)
  Receive Date: 20130411
  Receipt Date: 20130411
  Transmission Date: 20140414
  Serious: Yes (Other)
  Sender: FDA-Public Use
  Company Number: None

PATIENT
  Age: 58 Year
  Sex: Female
  Weight: 99.79 kg

DRUGS (2)
  1. BUPIVICAINE [Suspect]
     Indication: KNEE ARTHROPLASTY
     Dosage: 2 ML X 2 DOSES SPINAL
     Dates: start: 20130409
  2. DEXTROSE [Suspect]

REACTIONS (2)
  - Drug ineffective [None]
  - Product quality issue [None]
